FAERS Safety Report 14061508 (Version 1)
Quarter: 2017Q4

REPORT INFORMATION
  Report Type: Spontaneous
  Country: FR (occurrence: FR)
  Receive Date: 20171009
  Receipt Date: 20171009
  Transmission Date: 20180321
  Serious: Yes (Hospitalization)
  Sender: FDA-Public Use
  Company Number: FR-009507513-1710FRA001930

PATIENT
  Age: 81 Year
  Sex: Male

DRUGS (3)
  1. AERIUS [Suspect]
     Active Substance: DESLORATADINE
     Indication: ARTHROPOD BITE
     Dosage: UNKNOWN
     Route: 048
     Dates: start: 20170625, end: 20170628
  2. SOLUPRED [Suspect]
     Active Substance: PREDNISOLONE
     Indication: ARTHROPOD BITE
     Dosage: UNKNOWN
     Route: 048
     Dates: start: 20170625, end: 20170628
  3. PYOSTACINE [Suspect]
     Active Substance: PRISTINAMYCIN
     Indication: ARTHROPOD BITE
     Dosage: UNKNOWN
     Route: 048
     Dates: start: 20170625, end: 20170628

REACTIONS (1)
  - Acute generalised exanthematous pustulosis [Recovered/Resolved]

NARRATIVE: CASE EVENT DATE: 20170627
